FAERS Safety Report 10248522 (Version 1)
Quarter: 2014Q2

REPORT INFORMATION
  Report Type: Spontaneous
  Country: US (occurrence: None)
  Receive Date: 20140617
  Receipt Date: 20140617
  Transmission Date: 20141212
  Serious: No
  Sender: FDA-Public Use
  Company Number: None

PATIENT
  Sex: 0

DRUGS (1)
  1. HEMANGEOL [Suspect]

REACTIONS (4)
  - Product formulation issue [None]
  - Off label use [None]
  - Circumstance or information capable of leading to medication error [None]
  - Product substitution issue [None]
